FAERS Safety Report 15744985 (Version 1)
Quarter: 2018Q4

REPORT INFORMATION
  Report Type: Report from Study
  Country: CA (occurrence: CA)
  Receive Date: 20181220
  Receipt Date: 20181220
  Transmission Date: 20190205
  Serious: Yes (Other)
  Sender: FDA-Public Use
  Company Number: CA-GLAXOSMITHKLINE-CA2017GSK109430

PATIENT
  Age: 35 Year
  Sex: Female

DRUGS (7)
  1. HUMIRA [Suspect]
     Active Substance: ADALIMUMAB
     Indication: PRODUCT USED FOR UNKNOWN INDICATION
     Dosage: 40 MG, BI-MONTHLY
     Route: 058
     Dates: start: 201611, end: 20170615
  2. COSENTYX [Suspect]
     Active Substance: SECUKINUMAB
     Dosage: 150 MG, QMO
     Route: 058
     Dates: start: 20181116
  3. DICLOFENAC SODIUM. [Suspect]
     Active Substance: DICLOFENAC SODIUM
     Indication: ANKYLOSING SPONDYLITIS
     Dosage: 50 MG, TID
     Route: 048
     Dates: start: 2014, end: 201604
  4. NAPROXEN. [Concomitant]
     Active Substance: NAPROXEN
     Indication: PRODUCT USED FOR UNKNOWN INDICATION
     Dosage: 500 MG, BID
     Route: 048
     Dates: start: 2014, end: 2014
  5. COSENTYX [Suspect]
     Active Substance: SECUKINUMAB
     Indication: ANKYLOSING SPONDYLITIS
     Dosage: 150 MG, QW
     Route: 058
     Dates: start: 20170913
  6. COSENTYX [Suspect]
     Active Substance: SECUKINUMAB
     Dosage: 150 MG, QW
     Route: 058
     Dates: start: 20170920
  7. COSENTYX [Suspect]
     Active Substance: SECUKINUMAB
     Dosage: 150 MG, QMO
     Route: 058
     Dates: start: 20181017

REACTIONS (13)
  - Tooth abscess [Unknown]
  - Streptococcal infection [Unknown]
  - Headache [Unknown]
  - Erythema [Unknown]
  - Condition aggravated [Unknown]
  - Limb discomfort [Unknown]
  - Feeling hot [Unknown]
  - Wound [Unknown]
  - Hypersensitivity [Not Recovered/Not Resolved]
  - Burning sensation [Unknown]
  - Fatigue [Unknown]
  - Blister [Unknown]
  - Skin plaque [Unknown]

NARRATIVE: CASE EVENT DATE: 20170615
